FAERS Safety Report 12055130 (Version 2)
Quarter: 2016Q2

REPORT INFORMATION
  Report Type: Report from Study
  Country: US (occurrence: US)
  Receive Date: 20160209
  Receipt Date: 20160621
  Transmission Date: 20160815
  Serious: Yes (Death, Life-Threatening, Other)
  Sender: FDA-Public Use
  Company Number: US-TAKEDA-2016MPI000795

PATIENT
  Age: 69 Year
  Sex: Female
  Weight: 60.8 kg

DRUGS (4)
  1. ETOPOSIDE. [Suspect]
     Active Substance: ETOPOSIDE
     Indication: ACUTE MYELOID LEUKAEMIA
     Dosage: 135 MG, UNK
     Route: 042
     Dates: start: 20160113, end: 20160118
  2. CYTARABINE. [Suspect]
     Active Substance: CYTARABINE
     Indication: ACUTE MYELOID LEUKAEMIA
     Dosage: 1680 MG, UNK
     Route: 042
     Dates: start: 20160113, end: 20160118
  3. MITOXANTRONE [Suspect]
     Active Substance: MITOXANTRONE HYDROCHLORIDE
     Indication: ACUTE MYELOID LEUKAEMIA
     Dosage: 10 MG, UNK
     Route: 042
     Dates: start: 20160113, end: 20160118
  4. IXAZOMIB [Suspect]
     Active Substance: IXAZOMIB
     Indication: ACUTE MYELOID LEUKAEMIA
     Dosage: 1 MG, UNK
     Route: 048
     Dates: start: 20160113, end: 20160116

REACTIONS (2)
  - Acute myeloid leukaemia [Fatal]
  - Sepsis [Unknown]

NARRATIVE: CASE EVENT DATE: 20160120
